FAERS Safety Report 9830980 (Version 1)
Quarter: 2014Q1

REPORT INFORMATION
  Report Type: Report from Study
  Country: MX (occurrence: MX)
  Receive Date: 20140120
  Receipt Date: 20140120
  Transmission Date: 20141002
  Serious: Yes (Death)
  Sender: FDA-Public Use
  Company Number: PHHY2014MX005879

PATIENT
  Age: 76 Year
  Sex: Male
  Weight: 49 kg

DRUGS (3)
  1. ONBREZ [Suspect]
     Indication: DYSPNOEA
     Dosage: 300 UG, QD
     Route: 055
     Dates: start: 201307
  2. ONBREZ [Suspect]
     Indication: OFF LABEL USE
  3. SPIRIVA [Concomitant]
     Indication: DYSPNOEA
     Dosage: 1 DF, DAILY
     Route: 055

REACTIONS (1)
  - Cardio-respiratory arrest [Fatal]
